FAERS Safety Report 5195562-3 (Version None)
Quarter: 2007Q1

REPORT INFORMATION
  Report Type: 
  Country: None (occurrence: None)
  Receive Date: 20070102
  Receipt Date: 20061220
  Transmission Date: 20070707
  Serious: Yes (Other)
  Sender: FDA-Public Use
  Company Number: GB-ELI_LILLY_AND_COMPANY-GB200612003562

PATIENT
  Age: 32 Year
  Sex: Female

DRUGS (1)
  1. ZYPREXA [Suspect]
     Indication: MAJOR DEPRESSION
     Dosage: 15 MG, UNK
     Dates: end: 20020101

REACTIONS (2)
  - CARDIAC FAILURE [None]
  - MYOCARDITIS [None]
